FAERS Safety Report 7780602-5 (Version None)
Quarter: 2011Q3

REPORT INFORMATION
  Report Type: 
  Country: None (occurrence: None)
  Receive Date: 20110927
  Receipt Date: 20100928
  Transmission Date: 20111222
  Serious: No
  Sender: FDA-Public Use
  Company Number: US-BRISTOL-MYERS SQUIBB COMPANY-15259559

PATIENT
  Age: 60 Year
  Sex: Female
  Weight: 61 kg

DRUGS (9)
  1. FISH OIL [Concomitant]
  2. ASCORBIC ACID [Concomitant]
  3. VITAMIN B COMPLEX CAP [Concomitant]
  4. THYROID TAB [Concomitant]
  5. EVISTA [Concomitant]
  6. AVAPRO [Suspect]
     Dosage: 1 DF=1 PILL. 150MG
  7. VITAMIN TAB [Concomitant]
  8. ATIVAN [Concomitant]
  9. LUNESTA [Concomitant]

REACTIONS (1)
  - MEDICATION ERROR [None]
